FAERS Safety Report 4314340-8 (Version None)
Quarter: 2004Q1

REPORT INFORMATION
  Report Type: 
  Country: None (occurrence: None)
  Receive Date: 20040308
  Receipt Date: 20040223
  Transmission Date: 20041129
  Serious: Yes (Other)
  Sender: FDA-Public Use
  Company Number: 2004012246

PATIENT
  Age: 59 Year
  Sex: Female
  Weight: 120 kg

DRUGS (4)
  1. ZOLOFT [Suspect]
     Indication: DEPRESSION
     Dosage: 25 MG (QOD)
     Dates: start: 20020101
  2. ZOLOFT [Suspect]
     Indication: PANIC REACTION
     Dosage: 25 MG (QOD)
     Dates: start: 20020101
  3. CONJUGATED ESTROGENS [Concomitant]
  4. THYROID TAB [Concomitant]

REACTIONS (3)
  - CATARACT [None]
  - MACULAR HOLE [None]
  - VISUAL DISTURBANCE [None]
